FAERS Safety Report 19499291 (Version 1)
Quarter: 2021Q3

REPORT INFORMATION
  Report Type: Spontaneous
  Country: US (occurrence: US)
  Receive Date: 20210706
  Receipt Date: 20210706
  Transmission Date: 20211014
  Serious: Yes (Life-Threatening, Hospitalization, Other)
  Sender: FDA-Public Use
  Company Number: US-ASTRAZENECA-2021A589850

PATIENT
  Age: 23532 Day
  Sex: Female

DRUGS (3)
  1. SEROQUEL [Suspect]
     Active Substance: QUETIAPINE FUMARATE
     Indication: BIPOLAR DISORDER
     Route: 048
  2. KEPPRA [Concomitant]
     Active Substance: LEVETIRACETAM
     Indication: SEIZURE
  3. LAMICTAL [Concomitant]
     Active Substance: LAMOTRIGINE

REACTIONS (14)
  - Rash pruritic [Unknown]
  - Jaw fracture [Unknown]
  - Pneumonia aspiration [Unknown]
  - Amyotrophic lateral sclerosis [Unknown]
  - Weight decreased [Unknown]
  - Aspiration [Unknown]
  - Skull fracture [Unknown]
  - Cerebral haemorrhage [Unknown]
  - Fall [Unknown]
  - Cranial nerve injury [Unknown]
  - Seizure [Unknown]
  - Depression [Unknown]
  - Dysphagia [Unknown]
  - Reading disorder [Unknown]

NARRATIVE: CASE EVENT DATE: 20200804
